FAERS Safety Report 6278586-4 (Version None)
Quarter: 2009Q3

REPORT INFORMATION
  Report Type: 
  Country: None (occurrence: None)
  Receive Date: 20090722
  Receipt Date: 20081126
  Transmission Date: 20100115
  Serious: No
  Sender: FDA-Public Use
  Company Number: US-BAUSCH-2008BL004981

PATIENT
  Age: 55 Year
  Sex: Female
  Weight: 72 kg

DRUGS (6)
  1. OPCON-A [Suspect]
     Indication: EYE ALLERGY
     Route: 047
     Dates: start: 20080101
  2. SALSALATE [Concomitant]
     Indication: PAIN
     Route: 048
  3. CALCIUM WITH VITAMIN D [Concomitant]
     Indication: MINERAL SUPPLEMENTATION
     Route: 048
  4. LORATADINE [Concomitant]
     Route: 048
  5. LISINOPRIL [Concomitant]
     Route: 048
  6. ASPIRIN [Concomitant]
     Route: 048

REACTIONS (4)
  - BLEPHARITIS [None]
  - EYE DISCHARGE [None]
  - EYE IRRITATION [None]
  - OCULAR HYPERAEMIA [None]
